FAERS Safety Report 18573840 (Version 1)
Quarter: 2020Q4

REPORT INFORMATION
  Report Type: Report from Study
  Country: None (occurrence: BE)
  Receive Date: 20201203
  Receipt Date: 20201203
  Transmission Date: 20210114
  Serious: Yes (Hospitalization, Other)
  Sender: FDA-Public Use
  Company Number: BE-ABBVIE-20K-013-3670694-00

PATIENT
  Age: 69 Year
  Sex: Male
  Weight: 75 kg

DRUGS (26)
  1. HUMIRA [Suspect]
     Active Substance: ADALIMUMAB
     Indication: COLITIS ULCERATIVE
     Route: 058
     Dates: start: 20131002, end: 20150617
  2. CLOPIDOGREL [Concomitant]
     Active Substance: CLOPIDOGREL BISULFATE
     Indication: CARDIOVASCULAR DISORDER
     Route: 048
     Dates: start: 20200814
  3. PENTASA [Concomitant]
     Active Substance: MESALAMINE
     Indication: COLITIS ULCERATIVE
     Route: 048
     Dates: start: 20120220
  4. BUFOMIX [Concomitant]
     Active Substance: BUDESONIDE\FORMOTEROL FUMARATE
     Indication: DYSPNOEA
     Route: 055
     Dates: start: 20180208
  5. TRAMADOL. [Concomitant]
     Active Substance: TRAMADOL
     Indication: BACK PAIN
     Route: 048
     Dates: start: 201805, end: 2020
  6. FRAXIPARINE [Concomitant]
     Active Substance: NADROPARIN CALCIUM
     Indication: THROMBOSIS PROPHYLAXIS
     Route: 058
     Dates: start: 20200812, end: 20200911
  7. LATANOTEARS [Concomitant]
     Indication: DRY EYE
     Dosage: 1GTT (DROP(S)
     Route: 047
     Dates: start: 201405
  8. ATORVASTATIN [Concomitant]
     Active Substance: ATORVASTATIN
     Indication: HYPERCHOLESTEROLAEMIA
     Route: 048
     Dates: start: 20200912
  9. ENTYVIO [Concomitant]
     Active Substance: VEDOLIZUMAB
     Indication: COLITIS ULCERATIVE
     Route: 042
     Dates: start: 20200821, end: 20200821
  10. ASAFLOW [Concomitant]
     Active Substance: ASPIRIN
     Indication: CEREBROVASCULAR ACCIDENT PROPHYLAXIS
     Route: 048
     Dates: start: 201405
  11. MUCOCLEAR [Concomitant]
     Indication: DYSPNOEA
     Route: 055
     Dates: start: 20180220
  12. ACLASTA [Concomitant]
     Active Substance: ZOLEDRONIC ACID
     Indication: OSTEOPOROSIS
     Route: 042
     Dates: start: 201806
  13. HUMIRA [Suspect]
     Active Substance: ADALIMUMAB
     Route: 058
     Dates: start: 201508, end: 20151007
  14. STEOVIT D3 [Concomitant]
     Active Substance: CALCIUM CARBONATE\CHOLECALCIFEROL
     Indication: PROPHYLAXIS
     Route: 048
     Dates: start: 20200814, end: 20200911
  15. ULTRA-K [Concomitant]
     Route: 048
     Dates: start: 20200905, end: 20200911
  16. DAFALGAN [Concomitant]
     Active Substance: ACETAMINOPHEN
     Indication: CHEST PAIN
     Route: 048
     Dates: start: 20180201
  17. BRONCHOSEDAL [Concomitant]
     Active Substance: DEXTROMETHORPHAN HYDROBROMIDE
     Indication: SECRETION DISCHARGE
     Dates: start: 2018
  18. PRIVIGEN [Concomitant]
     Active Substance: HUMAN IMMUNOGLOBULIN G
     Indication: HYPOGAMMAGLOBULINAEMIA
     Route: 042
     Dates: start: 20200813, end: 20200813
  19. PANTOPRAZOLE [Concomitant]
     Active Substance: PANTOPRAZOLE
     Indication: PROPHYLAXIS
     Route: 042
     Dates: start: 20200901, end: 20200911
  20. ULTRA-K [Concomitant]
     Indication: HYPOKALAEMIA
     Route: 048
     Dates: start: 20200907, end: 20200908
  21. COVERSYL [Concomitant]
     Active Substance: PERINDOPRIL
     Indication: HYPERTENSION
     Route: 048
  22. VENTOLIN [Concomitant]
     Active Substance: ALBUTEROL SULFATE
     Indication: DYSPNOEA
     Route: 055
     Dates: start: 20180220
  23. CACIT [Concomitant]
     Indication: SECRETION DISCHARGE
     Route: 048
     Dates: start: 20200912
  24. XANAX [Concomitant]
     Active Substance: ALPRAZOLAM
     Indication: INSOMNIA
     Route: 048
     Dates: start: 20200812, end: 20200812
  25. XANAX [Concomitant]
     Active Substance: ALPRAZOLAM
     Route: 048
     Dates: start: 20200905, end: 20200911
  26. LIPITOR [Concomitant]
     Active Substance: ATORVASTATIN CALCIUM
     Indication: HYPERCHOLESTEROLAEMIA
     Route: 048
     Dates: start: 20200813, end: 20200911

REACTIONS (1)
  - Limb injury [Recovered/Resolved]

NARRATIVE: CASE EVENT DATE: 20200628
